FAERS Safety Report 4874411-4 (Version None)
Quarter: 2006Q1

REPORT INFORMATION
  Report Type: 
  Country: None (occurrence: None)
  Receive Date: 20060106
  Receipt Date: 20050830
  Transmission Date: 20060701
  Serious: Yes (Other)
  Sender: FDA-Public Use
  Company Number: PHEH2005US09701

PATIENT
  Age: 51 Year
  Sex: Female

DRUGS (8)
  1. ZOMETA [Suspect]
     Indication: METASTASES TO BONE
     Dosage: 4 MG, QMO
     Dates: start: 20020101
  2. CYTOXAN [Concomitant]
  3. ADRIAMYCIN PFS [Concomitant]
  4. GEMZAR [Concomitant]
  5. XELODA [Concomitant]
  6. FASLODEX [Concomitant]
  7. FEMARA [Concomitant]
  8. TAMOXIFEN [Concomitant]

REACTIONS (7)
  - BONE DISORDER [None]
  - ENDODONTIC PROCEDURE [None]
  - ERYTHEMA [None]
  - GINGIVAL SWELLING [None]
  - ORAL PAIN [None]
  - ORAL SOFT TISSUE DISORDER [None]
  - OSTEONECROSIS [None]
